FAERS Safety Report 14452549 (Version 2)
Quarter: 2018Q1

REPORT INFORMATION
  Report Type: Spontaneous
  Country: US (occurrence: US)
  Receive Date: 20180129
  Receipt Date: 20180306
  Transmission Date: 20180509
  Serious: Yes (Other)
  Sender: FDA-Public Use
  Company Number: US-ASTELLAS-2017US043439

PATIENT
  Age: 55 Year
  Sex: Male

DRUGS (1)
  1. XTANDI [Suspect]
     Active Substance: ENZALUTAMIDE
     Indication: PROSTATE CANCER
     Route: 048
     Dates: start: 20170720

REACTIONS (7)
  - Prostatic specific antigen increased [Unknown]
  - Gravitational oedema [Unknown]
  - Oedema genital [Unknown]
  - Fatigue [Unknown]
  - Abdominal distension [Unknown]
  - Gait disturbance [Unknown]
  - Bone pain [Unknown]

NARRATIVE: CASE EVENT DATE: 201710
